FAERS Safety Report 19141052 (Version 2)
Quarter: 2022Q1

REPORT INFORMATION
  Report Type: Spontaneous
  Country: US (occurrence: US)
  Receive Date: 20210415
  Receipt Date: 20220117
  Transmission Date: 20220423
  Serious: Yes (Hospitalization, Other)
  Sender: FDA-Public Use
  Company Number: US-MLMSERVICE-20210329-2808903-1

PATIENT
  Age: 55 Year
  Sex: Male
  Weight: 108.9 kg

DRUGS (4)
  1. TRAMADOL HYDROCHLORIDE [Suspect]
     Active Substance: TRAMADOL HYDROCHLORIDE
     Indication: Product used for unknown indication
     Dosage: 5-15 TABLETS
     Route: 048
  2. LORAZEPAM [Suspect]
     Active Substance: LORAZEPAM
     Indication: Product used for unknown indication
     Dosage: 26 DOSAGE FORM TABLET TOTAL
     Route: 048
  3. ACETAMINOPHEN\CODEINE PHOSPHATE [Suspect]
     Active Substance: ACETAMINOPHEN\CODEINE PHOSPHATE
     Indication: Product used for unknown indication
     Dosage: 5-15 DOSAGE FORM TOTAL
     Route: 048
  4. ALPRAZOLAM [Suspect]
     Active Substance: ALPRAZOLAM
     Indication: Product used for unknown indication
     Dosage: 30 DOSAGE FORM TOTAL
     Route: 048

REACTIONS (5)
  - Intentional overdose [Unknown]
  - Hypertension [Unknown]
  - Hypoglycaemia [Recovered/Resolved]
  - Somnolence [Unknown]
  - Suicidal ideation [Unknown]
